FAERS Safety Report 20128257 (Version 1)
Quarter: 2021Q4

REPORT INFORMATION
  Report Type: Other
  Country: CA (occurrence: CA)
  Receive Date: 20211129
  Receipt Date: 20211129
  Transmission Date: 20220303
  Serious: Yes (Other)
  Sender: FDA-Public Use
  Company Number: CA-CELLTRION INC.-2021CA015842

PATIENT

DRUGS (12)
  1. RITUXIMAB [Suspect]
     Active Substance: RITUXIMAB
     Indication: Granulomatosis with polyangiitis
     Dosage: 1000.0 MILLIGRAM
     Route: 041
  2. AMITRIPTYLINE [Concomitant]
     Active Substance: AMITRIPTYLINE
     Dosage: 25.0 MILLIGRAM
     Route: 065
  3. APIXABAN [Concomitant]
     Active Substance: APIXABAN
     Dosage: 5.0 MILLIGRAM, 2 EVERY 1 DAYS
  4. CALCIUM [Concomitant]
     Active Substance: CALCIUM
  5. EZETIMIBE [Concomitant]
     Active Substance: EZETIMIBE
     Dosage: 10.0 MILLIGRAM, 1 EVERY 1 DAYS
  6. PREDNISONE [Concomitant]
     Active Substance: PREDNISONE
     Dosage: 40.0 MILLIGRAM
  7. PREDNISONE [Concomitant]
     Active Substance: PREDNISONE
     Dosage: 5.0 MILLIGRAM
  8. REPATHA [Concomitant]
     Active Substance: EVOLOCUMAB
     Dosage: 140.0 MILLIGRAM
     Route: 065
  9. SEPTRA [Concomitant]
     Active Substance: SULFAMETHOXAZOLE\TRIMETHOPRIM
     Dosage: 1.0 DOSAGE FORMS
  10. TAPENTADOL [Concomitant]
     Active Substance: TAPENTADOL
  11. TYLENOL [Concomitant]
     Active Substance: ACETAMINOPHEN
     Indication: Premedication
     Dosage: 325.0 MILLIGRAM
  12. VITAMIN D [Concomitant]
     Active Substance: VITAMIN D NOS
     Dosage: 1000.0 IU (INTERNATIONAL UNIT) 1 EVERY 1 DAYS

REACTIONS (11)
  - Actinic keratosis [Not Recovered/Not Resolved]
  - Asthenia [Not Recovered/Not Resolved]
  - Fall [Not Recovered/Not Resolved]
  - Lung opacity [Not Recovered/Not Resolved]
  - Orthostatic hypotension [Not Recovered/Not Resolved]
  - Post herpetic neuralgia [Not Recovered/Not Resolved]
  - Post procedural swelling [Not Recovered/Not Resolved]
  - Pulmonary embolism [Not Recovered/Not Resolved]
  - Fatigue [Not Recovered/Not Resolved]
  - Herpes zoster [Not Recovered/Not Resolved]
  - Off label use [Not Recovered/Not Resolved]
